FAERS Safety Report 6194837-9 (Version None)
Quarter: 2009Q2

REPORT INFORMATION
  Report Type: 
  Country: None (occurrence: None)
  Receive Date: 20090519
  Receipt Date: 20080627
  Transmission Date: 20091009
  Serious: No
  Sender: FDA-Public Use
  Company Number: US-TYCO HEALTHCARE/MALLINCKRODT-T200801077

PATIENT

DRUGS (3)
  1. METHADONE [Suspect]
     Indication: PAIN
     Dosage: 20 MG, TID
     Route: 048
     Dates: start: 20070301, end: 20080531
  2. FENTANYL-100 [Suspect]
     Indication: PAIN
     Dates: end: 20070301
  3. METHOTREXATE [Concomitant]
     Dates: start: 20080401

REACTIONS (3)
  - FEELING HOT [None]
  - MALAISE [None]
  - WITHDRAWAL SYNDROME [None]
